FAERS Safety Report 6431186-5 (Version None)
Quarter: 2009Q4

REPORT INFORMATION
  Report Type: 
  Country: None (occurrence: None)
  Receive Date: 20091106
  Receipt Date: 20091022
  Transmission Date: 20100525
  Serious: Yes (Other)
  Sender: FDA-Public Use
  Company Number: NO-GENENTECH-285783

PATIENT
  Sex: Male

DRUGS (10)
  1. XOLAIR [Suspect]
     Indication: BLOOD IMMUNOGLOBULIN E INCREASED
     Dosage: 375 MG, UNKNOWN
     Route: 065
     Dates: start: 20090525
  2. XOLAIR [Suspect]
     Indication: ASTHMA
     Dosage: UNK
     Route: 065
     Dates: start: 20090608
  3. XOLAIR [Suspect]
     Dosage: UNK
     Route: 065
     Dates: start: 20090819
  4. XOLAIR [Suspect]
     Dosage: UNK
     Route: 066
     Dates: start: 20090902
  5. ATROVENT [Concomitant]
     Indication: DRUG USE FOR UNKNOWN INDICATION
  6. VENTOLIN [Concomitant]
     Indication: DRUG USE FOR UNKNOWN INDICATION
  7. PULMICORT [Concomitant]
     Indication: DRUG USE FOR UNKNOWN INDICATION
  8. SINGULAIR [Concomitant]
     Indication: DRUG USE FOR UNKNOWN INDICATION
  9. OMEPRAZOLE [Concomitant]
     Indication: DRUG USE FOR UNKNOWN INDICATION
  10. AERIUS [Concomitant]
     Indication: DRUG USE FOR UNKNOWN INDICATION

REACTIONS (5)
  - CHEST PAIN [None]
  - HEART RATE INCREASED [None]
  - INFLUENZA LIKE ILLNESS [None]
  - NAUSEA [None]
  - PYREXIA [None]
